FAERS Safety Report 4285978-1 (Version None)
Quarter: 2004Q1

REPORT INFORMATION
  Report Type: 
  Country: None (occurrence: None)
  Receive Date: 20040205
  Receipt Date: 20040202
  Transmission Date: 20041129
  Serious: Yes (Other)
  Sender: FDA-Public Use
  Company Number: WAES 0402GBR00044

PATIENT
  Age: 63 Year
  Sex: Female

DRUGS (6)
  1. COAL TAR AND ALLANTOIN [Concomitant]
  2. FENTANYL [Concomitant]
     Dates: start: 20030804, end: 20031031
  3. MORPHINE SULFATE [Concomitant]
     Dates: start: 20031124
  4. PSYLLIUM HUSK AND SENNA [Concomitant]
     Dates: start: 20031124
  5. VIOXX [Suspect]
     Indication: OSTEOARTHRITIS
     Route: 048
     Dates: start: 20030902, end: 20031216
  6. TRAMADOL HYDROCHLORIDE [Concomitant]
     Dates: start: 20030708

REACTIONS (1)
  - RASH [None]
